FAERS Safety Report 10365061 (Version 1)
Quarter: 2014Q3

REPORT INFORMATION
  Report Type: Spontaneous
  Country: US (occurrence: US)
  Receive Date: 20140806
  Receipt Date: 20140806
  Transmission Date: 20150326
  Serious: No
  Sender: FDA-Public Use
  Company Number: US-GLAXOSMITHKLINE-A1070496A

PATIENT
  Age: 70 Year
  Sex: Male

DRUGS (4)
  1. ALBUTEROL INHALER [Concomitant]
     Active Substance: ALBUTEROL
  2. DILANTIN [Concomitant]
     Active Substance: PHENYTOIN
  3. LITHIUM [Concomitant]
     Active Substance: LITHIUM CARBONATE
  4. ADVAIR HFA [Suspect]
     Active Substance: FLUTICASONE PROPIONATE\SALMETEROL XINAFOATE
     Indication: ASTHMA
     Dosage: 1PUFF TWICE PER DAY
     Route: 055

REACTIONS (3)
  - Rhinorrhoea [Unknown]
  - Hypersensitivity [Unknown]
  - Rhinorrhoea [Not Recovered/Not Resolved]
